FAERS Safety Report 9691496 (Version 2)
Quarter: 2013Q4

REPORT INFORMATION
  Report Type: Spontaneous
  Country: US (occurrence: US)
  Receive Date: 20131115
  Receipt Date: 20131115
  Transmission Date: 20140711
  Serious: No
  Sender: FDA-Public Use
  Company Number: US-009507513-1311USA006467

PATIENT
  Sex: Female
  Weight: 106.58 kg

DRUGS (2)
  1. NUVARING [Suspect]
     Indication: CONTRACEPTION
     Dosage: UNK
     Route: 067
     Dates: start: 2003, end: 2008
  2. NUVARING [Suspect]
     Dosage: UNK
     Route: 067
     Dates: start: 2009, end: 2011

REACTIONS (1)
  - Maternal exposure before pregnancy [Recovered/Resolved]
